FAERS Safety Report 26193168 (Version 1)
Quarter: 2025Q4

REPORT INFORMATION
  Report Type: Spontaneous
  Country: CA (occurrence: CA)
  Receive Date: 20251223
  Receipt Date: 20251223
  Transmission Date: 20260118
  Serious: Yes (Hospitalization, Other)
  Sender: NOVARTIS
  Company Number: CA-HALEON-2279632

PATIENT
  Age: 58 Year
  Sex: Female

DRUGS (85)
  1. VOLTAREN [Suspect]
     Active Substance: DICLOFENAC SODIUM
     Indication: Product used for unknown indication
     Dosage: UNK DOSAGE FORM: NOT SPECIFIED,ROA: UNKNOWN
     Route: 065
  2. ALENDRONIC ACID [Suspect]
     Active Substance: ALENDRONIC ACID
     Indication: Rheumatoid arthritis
     Dosage: UNK ROA: UNKNOWN
     Route: 065
  3. ERELZI [Suspect]
     Active Substance: ETANERCEPT-SZZS
     Indication: Rheumatoid arthritis
     Dosage: 25 MG ROA: UNKNOWN
     Route: 065
  4. ERELZI [Suspect]
     Active Substance: ETANERCEPT-SZZS
     Dosage: 25 MG ROA: UNKNOWN
     Route: 065
  5. ERELZI [Suspect]
     Active Substance: ETANERCEPT-SZZS
     Dosage: 50 MG ROA: UNKNOWN
     Route: 065
  6. ERELZI [Suspect]
     Active Substance: ETANERCEPT-SZZS
     Dosage: 25 MG ROA: UNKNOWN
     Route: 065
  7. ERELZI [Suspect]
     Active Substance: ETANERCEPT-SZZS
     Dosage: 25 MG ROA: UNKNOWN
     Route: 065
  8. ERELZI [Suspect]
     Active Substance: ETANERCEPT-SZZS
     Dosage: 50 MG ROA: UNKNOWN
     Route: 065
  9. ERELZI [Suspect]
     Active Substance: ETANERCEPT-SZZS
     Dosage: 12.5 MG
     Route: 065
  10. HYRIMOZ [Suspect]
     Active Substance: ADALIMUMAB-ADAZ
     Indication: Rheumatoid arthritis
     Dosage: 40 MG DOSAGE FORM: SOLUTION SUBCUTANEOUS, ROA: UNKNOWN
     Route: 065
  11. RISEDRONATE SODIUM [Suspect]
     Active Substance: RISEDRONATE SODIUM
     Indication: Product used for unknown indication
     Dosage: 35 MG DOSAGE FORM: NOT SPECIFIED, ROA: UNKNOWN
     Route: 065
  12. RISEDRONATE SODIUM [Suspect]
     Active Substance: RISEDRONATE SODIUM
     Dosage: 35 MG ROA: UNKNOWN
     Route: 065
  13. COSENTYX [Suspect]
     Active Substance: SECUKINUMAB
     Indication: Psoriatic arthropathy
     Dosage: UNK ROA: UNKNOWN
     Route: 065
  14. RITUXIMAB [Suspect]
     Active Substance: RITUXIMAB
     Indication: Rheumatoid arthritis
     Dosage: 1000 MG, QD ROA: INTRAVENOUS DRIP
     Route: 041
  15. RITUXIMAB [Suspect]
     Active Substance: RITUXIMAB
     Dosage: 1 MG, QD
     Route: 065
  16. RITUXIMAB [Suspect]
     Active Substance: RITUXIMAB
     Dosage: 1 MG
     Route: 065
  17. LEFLUNOMIDE [Suspect]
     Active Substance: LEFLUNOMIDE
     Indication: Rheumatoid arthritis
     Dosage: 20 MG ROA: UNKNOWN (CONCENTRATE FOR SOLUTION FOR INFUSION)
     Route: 065
  18. LEFLUNOMIDE [Suspect]
     Active Substance: LEFLUNOMIDE
     Dosage: 20 MG, QD ROA: UNKNOWN CONCENTRATE FOR SOLUTION FOR INFUSION
     Route: 065
  19. TRIAMCINOLONE [Suspect]
     Active Substance: TRIAMCINOLONE
     Indication: Product used for unknown indication
     Dosage: UNK DOSAGE FORM: SUSPENSION INTRA- ARTICULAR, ROA: UNKNOWN
     Route: 065
  20. ACTEMRA [Suspect]
     Active Substance: TOCILIZUMAB
     Indication: Rheumatoid arthritis
     Dosage: 200 MG/KG ROA:UNKNOWN
     Route: 065
  21. ACTEMRA [Suspect]
     Active Substance: TOCILIZUMAB
     Dosage: 8 MG/KG ROA: UNKNOWN
     Route: 065
  22. ACTEMRA [Suspect]
     Active Substance: TOCILIZUMAB
     Dosage: 280 MG ROA: UNKNOWN
     Route: 065
  23. ACTEMRA [Suspect]
     Active Substance: TOCILIZUMAB
     Dosage: 280 MG DOSAGE FORM: NOT SPECIFIED, ROA: UNKNOWN
     Route: 065
  24. ANAKINRA [Suspect]
     Active Substance: ANAKINRA
     Indication: Rheumatoid arthritis
     Dosage: 100 MG ROA: UNKNOWN
     Route: 065
  25. ANAKINRA [Suspect]
     Active Substance: ANAKINRA
     Dosage: 50 MG, QD ROA: UNKNOWN
     Route: 065
  26. LEFLUNOMIDE [Suspect]
     Active Substance: LEFLUNOMIDE
     Indication: Rheumatoid arthritis
     Dosage: 20 MG, QD ROA: UNKNOWN
     Route: 065
  27. LEFLUNOMIDE [Suspect]
     Active Substance: LEFLUNOMIDE
     Dosage: 20 MG, QD ROA: UNKNOWN
     Route: 065
  28. PREDNISONE [Suspect]
     Active Substance: PREDNISONE
     Indication: Rheumatoid arthritis
     Dosage: 10 MG, QD
     Route: 048
  29. ARAVA [Suspect]
     Active Substance: LEFLUNOMIDE
     Indication: Rheumatoid arthritis
     Dosage: 20 MG, QD ROA: UNKNOWN
     Route: 065
  30. DESOXIMETASONE [Suspect]
     Active Substance: DESOXIMETASONE
     Indication: Rheumatoid arthritis
     Dosage: UNK DOSAGE FORM: NOT SPECIFIED
     Route: 048
  31. FOLIC ACID [Suspect]
     Active Substance: FOLIC ACID
     Indication: Rheumatoid arthritis
     Dosage: 5 MG DOSAGE FORM: UNKNOWN, ROA: UNKNOWN
     Route: 065
  32. FOLIC ACID [Suspect]
     Active Substance: FOLIC ACID
     Dosage: 500 MG DOSAGE FORM: NOT SPECIFIED, ROA: UNKNOWN
     Route: 065
  33. HUMIRA [Suspect]
     Active Substance: ADALIMUMAB
     Indication: Rheumatoid arthritis
     Dosage: 40 MG DOSAGE FORM: SOLUTION SUBCUTANEOUS, ROA: UNKNOWN
     Route: 065
  34. HUMAN IMMUNOGLOBULIN G [Suspect]
     Active Substance: HUMAN IMMUNOGLOBULIN G
     Indication: Product used for unknown indication
     Dosage: 70 MG ROA: UNKNOWN
     Route: 065
  35. INFLIXIMAB [Suspect]
     Active Substance: INFLIXIMAB
     Indication: Product used for unknown indication
     Dosage: 5 MG/KG DOSAGE FORM: NOT SPECIFIED, ROA: UNKNOWN
     Route: 065
  36. INFLIXIMAB [Suspect]
     Active Substance: INFLIXIMAB
     Dosage: 3 MG/KG ROA: UNKNOWN
     Route: 065
  37. METHOTREXATE [Suspect]
     Active Substance: METHOTREXATE
     Indication: Rheumatoid arthritis
     Dosage: 20 MG
     Route: 048
  38. METHOTREXATE [Suspect]
     Active Substance: METHOTREXATE
     Dosage: 20 MG ROA; SUBDERMAL
     Route: 059
  39. METHOTREXATE [Suspect]
     Active Substance: METHOTREXATE
     Dosage: UNK ROA; SUBDERMAL
     Route: 059
  40. METHOTREXATE [Suspect]
     Active Substance: METHOTREXATE
     Dosage: 25 MG
     Route: 048
  41. METHOTREXATE [Suspect]
     Active Substance: METHOTREXATE
     Dosage: 50 MG ROA: UNKNOWN
     Route: 065
  42. METHOTREXATE [Suspect]
     Active Substance: METHOTREXATE
     Dosage: 20 MG ROA: UNKNOWN
     Route: 065
  43. METHOTREXATE [Suspect]
     Active Substance: METHOTREXATE
     Dosage: 25 MG DOSAGE FORM: SOLUTION INTRA- ARTERIAL, ROA: SUBDERMAL
     Route: 059
  44. NAPROXEN [Suspect]
     Active Substance: NAPROXEN
     Indication: Rheumatoid arthritis
     Dosage: UNK ROA: UNKNOWN
     Route: 065
  45. PHTHALYLSULFATHIAZOLE [Suspect]
     Active Substance: PHTHALYLSULFATHIAZOLE
     Indication: Rheumatoid arthritis
     Dosage: UNK ROA: UNKNOWN
     Route: 065
  46. PREDNISONE ACETATE [Suspect]
     Active Substance: PREDNISONE ACETATE
     Indication: Rheumatoid arthritis
     Dosage: 5 MG
     Route: 048
  47. PSEUDOEPHEDRINE [Suspect]
     Active Substance: PSEUDOEPHEDRINE
     Indication: Product used for unknown indication
     Dosage: UNK DOSAGE FORM: NOT SPECIFIED, ROA: UNKNOWN
     Route: 065
  48. REMICADE [Suspect]
     Active Substance: INFLIXIMAB
     Indication: Rheumatoid arthritis
     Dosage: 5 MG/KG ROA: INTRAVENOUS DRIP
     Route: 041
  49. REMICADE [Suspect]
     Active Substance: INFLIXIMAB
     Dosage: 30 MG ROA: INTRAVENOUS DRIP
     Route: 041
  50. REMICADE [Suspect]
     Active Substance: INFLIXIMAB
     Dosage: 35 MG DOSAGE FORM: POWDER FORBSOLUTION INTRAVENOUS, ROA:INTRAVENOUS DRIP
     Route: 041
  51. SIMPONI [Suspect]
     Active Substance: GOLIMUMAB
     Indication: Rheumatoid arthritis
     Dosage: 50 MG ROA: SUBDERMAL
     Route: 059
  52. SIMPONI [Suspect]
     Active Substance: GOLIMUMAB
     Dosage: 50 MG ROA: SUBDERMAL
     Route: 059
  53. SIMPONI [Suspect]
     Active Substance: GOLIMUMAB
     Dosage: 50 MG DOSAGE FORM: SOLUTION SUBCUTANEOUS, ROA: SUBDERMAL
     Route: 059
  54. SULFASALAZINE [Suspect]
     Active Substance: SULFASALAZINE
     Indication: Rheumatoid arthritis
     Dosage: 500 MG, QD ROA: UNKNOWN
     Route: 065
  55. SULFASALAZINE [Suspect]
     Active Substance: SULFASALAZINE
     Dosage: 250 MG, QD ROA: UNKNOWN
     Route: 065
  56. SULFASALAZINE [Suspect]
     Active Substance: SULFASALAZINE
     Dosage: 500 MG, QD ROA: UNKNOWN
     Route: 065
  57. TOCILIZUMAB [Suspect]
     Active Substance: TOCILIZUMAB
     Indication: Rheumatoid arthritis
     Dosage: 180 MG ROA: UNKNOWN
     Route: 065
  58. TOCILIZUMAB [Suspect]
     Active Substance: TOCILIZUMAB
     Dosage: 8 MG ROA: UNKNOWN
     Route: 065
  59. CIMZIA [Suspect]
     Active Substance: CERTOLIZUMAB PEGOL
     Indication: Rheumatoid arthritis
     Dosage: UNK ROA: SUBDERMAL
     Route: 059
  60. CORTISONE ACETATE [Suspect]
     Active Substance: CORTISONE ACETATE
     Indication: Rheumatoid arthritis
     Dosage: UNK ROA: TOPICAL
     Route: 050
  61. CETIRIZINE [Suspect]
     Active Substance: CETIRIZINE HYDROCHLORIDE
     Indication: Rheumatoid arthritis
     Dosage: UNK ROA: UNKNOWN DOSE FORM: UNKNOWN
     Route: 065
  62. CETIRIZINE [Suspect]
     Active Substance: CETIRIZINE HYDROCHLORIDE
     Indication: Off label use
     Dosage: UNK ROA: INTRAVENOUS DRIP
     Route: 041
  63. ENBREL [Suspect]
     Active Substance: ETANERCEPT
     Indication: Rheumatoid arthritis
     Dosage: 50 MG ROA: UNKNOWN
     Route: 065
  64. HYDROXYCHLOROQUINE [Suspect]
     Active Substance: HYDROXYCHLOROQUINE
     Indication: Rheumatoid arthritis
     Dosage: 5 MG
     Route: 048
  65. HYDROXYCHLOROQUINE [Suspect]
     Active Substance: HYDROXYCHLOROQUINE
     Dosage: 20 MG
     Route: 048
  66. HYDROXYCHLOROQUINE [Suspect]
     Active Substance: HYDROXYCHLOROQUINE
     Dosage: 1600 MG, QD
     Route: 048
  67. HYDROXYCHLOROQUINE [Suspect]
     Active Substance: HYDROXYCHLOROQUINE
     Dosage: 300 MG, QD
     Route: 048
  68. LEVOCETIRIZINE [Suspect]
     Active Substance: LEVOCETIRIZINE
     Indication: Product used for unknown indication
     Dosage: UNK ROA: UNKNOWN
     Route: 065
  69. LEVOCETIRIZINE HYDROCHLORIDE [Suspect]
     Active Substance: LEVOCETIRIZINE HYDROCHLORIDE
     Indication: Product used for unknown indication
     Dosage: UNK ROA: UNKNOWN
     Route: 065
  70. ORENCIA [Suspect]
     Active Substance: ABATACEPT
     Indication: Rheumatoid arthritis
     Dosage: 250 G ROA: UNKNOWN
     Route: 065
  71. ORENCIA [Suspect]
     Active Substance: ABATACEPT
     Dosage: 150 G  ROA: UNKNOWN
     Route: 065
  72. ORENCIA [Suspect]
     Active Substance: ABATACEPT
     Dosage: 750 G ROA: UNKNOWN
     Route: 065
  73. ORENCIA [Suspect]
     Active Substance: ABATACEPT
     Dosage: 150 G EVERY 0.33 WEEK  ROA: SUBDERMAL
     Route: 059
  74. ORENCIA [Suspect]
     Active Substance: ABATACEPT
     Dosage: 250 G ROA: UNKNOWN
     Route: 065
  75. ORENCIA [Suspect]
     Active Substance: ABATACEPT
     Dosage: 150 MG EVERY 0.33 WEEK  ROA: SUBDERMAL
     Route: 059
  76. RISEDRONIC ACID [Suspect]
     Active Substance: RISEDRONIC ACID
     Indication: Product used for unknown indication
     Dosage: UNK ROA: UNKNOWN
     Route: 065
  77. XELJANZ [Suspect]
     Active Substance: TOFACITINIB CITRATE
     Indication: Rheumatoid arthritis
     Dosage: 5 MG, QD
     Route: 048
  78. XELJANZ [Suspect]
     Active Substance: TOFACITINIB CITRATE
     Dosage: 10 MG, QD DOSAGE FORM: NOT SPECIFIED
     Route: 048
  79. CELECOXIB [Suspect]
     Active Substance: CELECOXIB
     Indication: Product used for unknown indication
     Dosage: 200 MG
     Route: 048
  80. QUETIAPINE [Concomitant]
     Active Substance: QUETIAPINE
     Indication: Product used for unknown indication
     Dosage: UNK ROA: UNKNOWN
     Route: 065
  81. CALCIUM GLUCONATE [Concomitant]
     Active Substance: CALCIUM GLUCONATE
     Indication: Product used for unknown indication
     Dosage: UNK DOSAGE FORM : NOT SPECIFIED, ROA: UNKNOWN
     Route: 065
  82. RISEDRONATE SODIUM [Concomitant]
     Active Substance: RISEDRONATE SODIUM
     Indication: Product used for unknown indication
     Dosage: UNK DOSAGE FORM: NOT SPECIFIED, ROA: UNKNOWN
     Route: 065
  83. PANTOPRAZOLE [Concomitant]
     Active Substance: PANTOPRAZOLE
     Indication: Product used for unknown indication
     Dosage: UNK DOSAGE FORM: NOT SPECIFIED, ROA: UNKNOWN
     Route: 065
  84. RAMIPRIL [Concomitant]
     Active Substance: RAMIPRIL
     Indication: Product used for unknown indication
     Dosage: UNK DOSAGE FORM: NOT SPECIFIED, ROA: UNKNOWN
     Route: 065
  85. WELLBUTRIN [Concomitant]
     Active Substance: BUPROPION HYDROCHLORIDE
     Indication: Product used for unknown indication
     Dosage: UNK DOSE FORM: EXTENDED RELEASE TABLET, ROA: UNKNOWN
     Route: 065

REACTIONS (15)
  - Pulmonary fibrosis [Not Recovered/Not Resolved]
  - Anti-cyclic citrullinated peptide antibody positive [Not Recovered/Not Resolved]
  - Drug tolerance [Not Recovered/Not Resolved]
  - Infection [Not Recovered/Not Resolved]
  - Joint destruction [Not Recovered/Not Resolved]
  - Loss of consciousness [Not Recovered/Not Resolved]
  - Rheumatoid factor positive [Not Recovered/Not Resolved]
  - Therapeutic product effect decreased [Not Recovered/Not Resolved]
  - Immunodeficiency [Not Recovered/Not Resolved]
  - Adrenal insufficiency [Not Recovered/Not Resolved]
  - Drug hypersensitivity [Not Recovered/Not Resolved]
  - Hypokalaemia [Not Recovered/Not Resolved]
  - Polyarthritis [Not Recovered/Not Resolved]
  - Psoriasis [Not Recovered/Not Resolved]
  - Therapy non-responder [Not Recovered/Not Resolved]
